FAERS Safety Report 5851982-2 (Version None)
Quarter: 2008Q3

REPORT INFORMATION
  Report Type: 
  Country: None (occurrence: None)
  Receive Date: 20080820
  Receipt Date: 20080811
  Transmission Date: 20090109
  Serious: Yes (Other)
  Sender: FDA-Public Use
  Company Number: AU-PFIZER INC-2008062112

PATIENT
  Sex: Male
  Weight: 57 kg

DRUGS (5)
  1. XALATAN [Suspect]
     Indication: OPEN ANGLE GLAUCOMA
     Route: 047
  2. DILANTIN [Concomitant]
     Route: 048
  3. KEPPRA [Concomitant]
     Route: 048
  4. EFFEXOR [Concomitant]
     Route: 048
  5. THYROXINE [Concomitant]
     Dosage: DAILY DOSE:75MCG
     Route: 048

REACTIONS (1)
  - EPILEPSY [None]
